FAERS Safety Report 24227309 (Version 2)
Quarter: 2024Q4

REPORT INFORMATION
  Report Type: Report from Study
  Country: ZA (occurrence: ZA)
  Receive Date: 20240820
  Receipt Date: 20241003
  Transmission Date: 20250114
  Serious: Yes (Congenital Anomaly, Other)
  Sender: MYLAN
  Company Number: ZA-MYLANLABS-2024M1075438

PATIENT
  Sex: Male

DRUGS (2)
  1. DOLUTEGRAVIR\LAMIVUDINE\TENOFOVIR DISOPROXIL FUMARATE [Suspect]
     Active Substance: DOLUTEGRAVIR\LAMIVUDINE\TENOFOVIR DISOPROXIL FUMARATE
     Indication: HIV infection
     Dosage: 650 MILLIGRAM, QD
     Route: 064
     Dates: start: 20140120
  2. DOLUTEGRAVIR [Suspect]
     Active Substance: DOLUTEGRAVIR
     Indication: HIV infection
     Dosage: 50 MILLIGRAM, QD
     Route: 064
     Dates: start: 20240812

REACTIONS (2)
  - Ultrasound foetal abnormal [Recovered/Resolved]
  - Foetal exposure during pregnancy [Recovered/Resolved]

NARRATIVE: CASE EVENT DATE: 20240802
